FAERS Safety Report 5513479-9 (Version None)
Quarter: 2007Q4

REPORT INFORMATION
  Report Type: 
  Country: None (occurrence: None)
  Receive Date: 20071112
  Receipt Date: 20071030
  Transmission Date: 20080405
  Serious: Yes (Life-Threatening)
  Sender: FDA-Public Use
  Company Number: GB-BAXTER-2007BH008812

PATIENT
  Weight: 1 kg

DRUGS (3)
  1. GENTAMICIN [Suspect]
     Indication: INFECTION PROPHYLAXIS
     Route: 042
     Dates: start: 20051201
  2. PENICILLIN G [Suspect]
     Indication: INFECTION PROPHYLAXIS
     Route: 042
     Dates: start: 20051229
  3. PENICILLIN G [Suspect]
     Route: 042
     Dates: start: 20051201

REACTIONS (2)
  - DRUG INEFFECTIVE [None]
  - SEPSIS [None]
